FAERS Safety Report 8158949-2 (Version None)
Quarter: 2012Q1

REPORT INFORMATION
  Report Type: 
  Country: None (occurrence: None)
  Receive Date: 20120223
  Receipt Date: 20120207
  Transmission Date: 20120608
  Serious: Yes (Hospitalization)
  Sender: FDA-Public Use
  Company Number: DE-UCBSA-051259

PATIENT
  Age: 71 Year
  Sex: Male
  Weight: 75 kg

DRUGS (13)
  1. NEUPRO [Suspect]
     Route: 062
     Dates: start: 20101213, end: 20110316
  2. AMANTADINE HCL [Suspect]
     Indication: PARKINSON'S DISEASE
     Dates: start: 20030730
  3. FOSINOPRIL SODIUM [Concomitant]
     Indication: CARDIOVASCULAR DISORDER
     Dosage: FREQ: OTHER 1/2
     Dates: start: 20101213, end: 20110101
  4. GLIBENCLAMID SANDOZ [Concomitant]
     Indication: DIABETES MELLITUS
     Dosage: FREQ: OTHER 1/2
     Dates: start: 20101213
  5. LEVODOPA RATIO COMP [Suspect]
     Indication: PARKINSON'S DISEASE
     Dosage: 100/25 MG
     Dates: start: 20100526
  6. LEVODOPA RATIO COMP [Suspect]
     Dosage: 100/25MG OTHER  1; - ; 1
     Dates: start: 20051111, end: 20100525
  7. LYRICA [Concomitant]
     Dates: start: 20050622
  8. NEUPRO [Suspect]
     Indication: PARKINSON'S DISEASE
     Route: 062
     Dates: start: 20110824
  9. LEVODOPA RATIO COMP [Suspect]
     Dosage: 100/25 MG.
     Dates: start: 20050224, end: 20051110
  10. LYRICA [Concomitant]
     Indication: POLYNEUROPATHY
     Dates: start: 20050203
  11. CLOPIDOGREL RATIOPH [Concomitant]
     Indication: PROPHYLAXIS
     Dates: start: 20100525
  12. NEUPRO [Suspect]
     Route: 062
     Dates: start: 20110317, end: 20110823
  13. PIRACETAM NEURAX GRAN [Concomitant]
     Indication: DEMYELINATION
     Dates: start: 20051110

REACTIONS (2)
  - PARKINSON'S DISEASE [None]
  - CEREBROVASCULAR ACCIDENT [None]
